FAERS Safety Report 16225281 (Version 1)
Quarter: 2019Q2

REPORT INFORMATION
  Report Type: Report from Study
  Country: US (occurrence: US)
  Receive Date: 20190422
  Receipt Date: 20190422
  Transmission Date: 20190711
  Serious: Yes (Hospitalization)
  Sender: FDA-Public Use
  Company Number: US-ACTELION-A-NJ2019-189373

PATIENT
  Age: 88 Year
  Sex: Female
  Weight: 45.35 kg

DRUGS (2)
  1. OPSUMIT [Suspect]
     Active Substance: MACITENTAN
     Indication: PULMONARY ARTERIAL HYPERTENSION
     Dosage: 10 MG, QD
     Route: 048
  2. ADEMPAS [Suspect]
     Active Substance: RIOCIGUAT
     Indication: PRODUCT USED FOR UNKNOWN INDICATION
     Route: 065

REACTIONS (10)
  - Fall [Unknown]
  - Cerebral haemorrhage [Unknown]
  - Weight decreased [Unknown]
  - Haematoma [Unknown]
  - Dehydration [Unknown]
  - Dyspnoea [Unknown]
  - Balance disorder [Unknown]
  - Diarrhoea [Unknown]
  - Head injury [Unknown]
  - Fluid retention [Unknown]

NARRATIVE: CASE EVENT DATE: 201903
